FAERS Safety Report 5977362-7 (Version None)
Quarter: 2008Q4

REPORT INFORMATION
  Report Type: 
  Country: None (occurrence: None)
  Receive Date: 20081203
  Receipt Date: 20081125
  Transmission Date: 20090506
  Serious: Yes (Other)
  Sender: FDA-Public Use
  Company Number: PHHY2008BR29610

PATIENT
  Age: 40 Year
  Sex: Female

DRUGS (3)
  1. RITALIN [Suspect]
     Indication: DISTURBANCE IN ATTENTION
     Dosage: 1/4 TABLET, BID (MORN. + LUNCH)
     Route: 048
  2. LEXAPRO [Concomitant]
     Indication: DEPRESSION
  3. EFFEXOR [Concomitant]
     Indication: DEPRESSION
     Dosage: 37.5, 1 TAB IN MORNING

REACTIONS (7)
  - ACNE [None]
  - BLISTER [None]
  - ERYTHEMA [None]
  - HEADACHE [None]
  - HYPERSENSITIVITY [None]
  - RASH PAPULAR [None]
  - SKIN REACTION [None]
